FAERS Safety Report 18037886 (Version 1)
Quarter: 2020Q3

REPORT INFORMATION
  Report Type: Report from Study
  Country: US (occurrence: US)
  Receive Date: 20200717
  Receipt Date: 20200717
  Transmission Date: 20201103
  Serious: Yes (Congenital Anomaly, Other)
  Sender: FDA-Public Use
  Company Number: US-MYLANLABS-2020M1064426

PATIENT

DRUGS (1)
  1. GABAPENTIN. [Suspect]
     Active Substance: GABAPENTIN
     Indication: EPILEPSY
     Route: 064

REACTIONS (3)
  - Hiatus hernia [Unknown]
  - Foetal exposure during pregnancy [Unknown]
  - Inguinal hernia [Unknown]
